FAERS Safety Report 16832882 (Version 1)
Quarter: 2019Q3

REPORT INFORMATION
  Report Type: Spontaneous
  Country: US (occurrence: US)
  Receive Date: 20190920
  Receipt Date: 20190920
  Transmission Date: 20191005
  Serious: No
  Sender: FDA-Public Use
  Company Number: US-BAYER-2019-172162

PATIENT
  Age: 37 Year
  Sex: Male
  Weight: 227 kg

DRUGS (2)
  1. ALEVE BACK AND MUSCLE PAIN [Suspect]
     Active Substance: NAPROXEN SODIUM
     Dosage: 3 DF, QD
     Dates: start: 2018
  2. ALEVE BACK AND MUSCLE PAIN [Suspect]
     Active Substance: NAPROXEN SODIUM
     Dosage: 4 DF, QD
     Route: 048
     Dates: start: 2018

REACTIONS (2)
  - Drug ineffective [None]
  - Extra dose administered [None]
